FAERS Safety Report 14849262 (Version 1)
Quarter: 2018Q2

REPORT INFORMATION
  Report Type: Spontaneous
  Country: US (occurrence: US)
  Receive Date: 20180504
  Receipt Date: 20180504
  Transmission Date: 20180711
  Serious: No
  Sender: FDA-Public Use
  Company Number: US-FLEXION THERAPEUTICS, INC.-2018FLS000005

PATIENT
  Age: 87 Year
  Sex: Female
  Weight: 113.5 kg

DRUGS (3)
  1. LASIX [Concomitant]
     Active Substance: FUROSEMIDE
     Indication: POOR PERIPHERAL CIRCULATION
  2. BLOOD THINNER [Concomitant]
     Active Substance: UNSPECIFIED INGREDIENT
     Indication: ANTICOAGULANT THERAPY
  3. ZILRETTA [Suspect]
     Active Substance: TRIAMCINOLONE ACETONIDE
     Indication: OSTEOARTHRITIS
     Route: 014
     Dates: start: 20180115, end: 20180115

REACTIONS (3)
  - Dyskinesia [Unknown]
  - Paraesthesia [Unknown]
  - Joint instability [Unknown]

NARRATIVE: CASE EVENT DATE: 20180203
